FAERS Safety Report 14824713 (Version 2)
Quarter: 2018Q2

REPORT INFORMATION
  Report Type: Report from Study
  Country: IT (occurrence: IT)
  Receive Date: 20180429
  Receipt Date: 20180511
  Transmission Date: 20180711
  Serious: Yes (Hospitalization)
  Sender: FDA-Public Use
  Company Number: IT-ELI_LILLY_AND_COMPANY-IT201708001272

PATIENT
  Age: 60 Year
  Sex: Male
  Weight: 54 kg

DRUGS (7)
  1. NALOXONE HCL W/OXYCODONE HCL [Concomitant]
     Active Substance: NALOXONE HYDROCHLORIDE\OXYCODONE HYDROCHLORIDE
     Indication: MALIGNANT PERITONEAL NEOPLASM
     Dosage: UNK
     Dates: start: 201704
  2. DOMPERIDONE [Concomitant]
     Active Substance: DOMPERIDONE
     Indication: MALIGNANT PERITONEAL NEOPLASM
     Dosage: UNK
     Dates: start: 201704
  3. RAMUCIRUMAB [Suspect]
     Active Substance: RAMUCIRUMAB
     Indication: GASTRIC CANCER
     Dosage: 8 MG/KG, 2/M
     Route: 042
     Dates: start: 20170508, end: 20170717
  4. FUROSEMIDE. [Concomitant]
     Active Substance: FUROSEMIDE
     Indication: MALIGNANT PERITONEAL NEOPLASM
     Dosage: UNK
     Dates: start: 201704
  5. ESOMEPRAZOLE [Concomitant]
     Active Substance: ESOMEPRAZOLE
     Indication: MALIGNANT PERITONEAL NEOPLASM
     Dosage: UNK
     Dates: start: 201704
  6. PACLITAXEL. [Suspect]
     Active Substance: PACLITAXEL
     Indication: ADENOCARCINOMA GASTRIC
     Dosage: 80 UG/KG, CYCLICAL
     Route: 042
     Dates: start: 20170508, end: 20170710
  7. CANRENONE [Concomitant]
     Active Substance: CANRENONE
     Indication: MALIGNANT PERITONEAL NEOPLASM
     Dosage: UNK
     Dates: start: 201704

REACTIONS (2)
  - Pulmonary embolism [Recovered/Resolved with Sequelae]
  - Abdominal pain upper [Unknown]

NARRATIVE: CASE EVENT DATE: 20170801
